FAERS Safety Report 5230170-7 (Version None)
Quarter: 2007Q1

REPORT INFORMATION
  Report Type: 
  Country: None (occurrence: None)
  Receive Date: 20070206
  Receipt Date: 20060929
  Transmission Date: 20070707
  Serious: Yes (Other)
  Sender: FDA-Public Use
  Company Number: US-GLAXOSMITHKLINE-A0620554A

PATIENT
  Age: 44 Year
  Sex: Female

DRUGS (2)
  1. PAXIL CR [Suspect]
     Route: 048
     Dates: start: 20020101
  2. LAMICTAL [Concomitant]
     Dosage: 75MG PER DAY

REACTIONS (1)
  - SUICIDAL IDEATION [None]
